FAERS Safety Report 7601984-0 (Version None)
Quarter: 2011Q2

REPORT INFORMATION
  Report Type: 
  Country: None (occurrence: None)
  Receive Date: 20110630
  Receipt Date: 20110303
  Transmission Date: 20111010
  Serious: Yes (Hospitalization)
  Sender: FDA-Public Use
  Company Number: 2011027791

PATIENT
  Age: 61 Year
  Sex: Female
  Weight: 107.5025 kg

DRUGS (20)
  1. VITAMIN D [Concomitant]
  2. EPIPEN [Concomitant]
  3. FUROSEMIDE [Concomitant]
  4. CARIMUNE NF [Suspect]
     Indication: SYSTEMIC LUPUS ERYTHEMATOSUS
     Dosage: SEE IMAGE
     Route: 042
     Dates: start: 20050101
  5. CARIMUNE NF [Suspect]
     Indication: MULTIPLE SCLEROSIS
     Dosage: SEE IMAGE
     Route: 042
     Dates: start: 20050101
  6. CARIMUNE NF [Suspect]
     Indication: SYSTEMIC LUPUS ERYTHEMATOSUS
     Dosage: SEE IMAGE
     Route: 042
     Dates: end: 20110226
  7. CARIMUNE NF [Suspect]
     Indication: MULTIPLE SCLEROSIS
     Dosage: SEE IMAGE
     Route: 042
     Dates: end: 20110226
  8. CARIMUNE NF [Suspect]
     Indication: SYSTEMIC LUPUS ERYTHEMATOSUS
     Dosage: SEE IMAGE
     Route: 042
     Dates: end: 20110226
  9. CARIMUNE NF [Suspect]
     Indication: MULTIPLE SCLEROSIS
     Dosage: SEE IMAGE
     Route: 042
     Dates: end: 20110226
  10. POTASSIUM CHLORIDE [Concomitant]
  11. LEXAPRO [Concomitant]
  12. ATIVAN [Concomitant]
  13. DIPHENHYDRAMINE HCL [Concomitant]
  14. HEPARIN [Concomitant]
  15. WELLBUTRIN XL [Concomitant]
  16. DEMADEX [Concomitant]
  17. SODIUM CHLORIDE 0.9% [Concomitant]
  18. BACLOFEN [Concomitant]
  19. CARIMUNE NF [Suspect]
  20. MULTIVITAMIN (ACCOMIN MULTIVITAMIN) [Concomitant]

REACTIONS (3)
  - BODY TEMPERATURE INCREASED [None]
  - EMOTIONAL DISORDER [None]
  - CHILLS [None]
